FAERS Safety Report 7467951-5 (Version None)
Quarter: 2011Q2

REPORT INFORMATION
  Report Type: 
  Country: None (occurrence: None)
  Receive Date: 20110509
  Receipt Date: 20110505
  Transmission Date: 20111010
  Serious: Yes (Death)
  Sender: FDA-Public Use
  Company Number: CA-ABBOTT-11P-028-0723611-00

PATIENT

DRUGS (1)
  1. LUPRON DEPOT [Suspect]
     Indication: PROSTATE CANCER
     Dosage: 4 MONTHS DEPOT
     Route: 030
     Dates: start: 20070904

REACTIONS (1)
  - DEATH [None]
